FAERS Safety Report 5540675-7 (Version None)
Quarter: 2007Q4

REPORT INFORMATION
  Report Type: 
  Country: None (occurrence: None)
  Receive Date: 20071208
  Receipt Date: 20070830
  Transmission Date: 20080405
  Serious: No
  Sender: FDA-Public Use
  Company Number: US-AMGEN-KDL240308

PATIENT
  Sex: Female
  Weight: 47.2 kg

DRUGS (3)
  1. ENBREL [Suspect]
     Indication: PSORIATIC ARTHROPATHY
     Route: 058
     Dates: start: 20040101
  2. ACTONEL [Concomitant]
     Dates: start: 20070425
  3. UNSPECIFIED MEDICATION [Concomitant]

REACTIONS (1)
  - INJECTION SITE PAIN [None]
